FAERS Safety Report 8110403-X (Version None)
Quarter: 2012Q1

REPORT INFORMATION
  Report Type: 
  Country: None (occurrence: None)
  Receive Date: 20120202
  Receipt Date: 20120124
  Transmission Date: 20120608
  Serious: Yes (Other)
  Sender: FDA-Public Use
  Company Number: BR-MERCK-1201BRA00073

PATIENT
  Age: 69 Year
  Sex: Male

DRUGS (1)
  1. VYTORIN [Suspect]
     Indication: RENAL DISORDER
     Route: 065
     Dates: start: 20020101

REACTIONS (3)
  - BLADDER NEOPLASM [None]
  - GASTROINTESTINAL NEOPLASM [None]
  - OFF LABEL USE [None]
